FAERS Safety Report 15010430 (Version 2)
Quarter: 2018Q2

REPORT INFORMATION
  Report Type: Report from Study
  Country: MX (occurrence: MX)
  Receive Date: 20180614
  Receipt Date: 20180629
  Transmission Date: 20180711
  Serious: Yes (Other)
  Sender: FDA-Public Use
  Company Number: PHHY2017MX078330

PATIENT
  Age: 60 Year
  Sex: Female

DRUGS (6)
  1. AFINITOR [Suspect]
     Active Substance: EVEROLIMUS
     Indication: METASTASES TO LIVER
  2. AFINITOR [Suspect]
     Active Substance: EVEROLIMUS
     Indication: HEPATIC CANCER METASTATIC
  3. ZOMETA [Suspect]
     Active Substance: ZOLEDRONIC ACID
     Indication: PRODUCT USED FOR UNKNOWN INDICATION
     Dosage: Q3MO (EVERY 3 MONTHS)
     Route: 065
  4. FULVESTRANT. [Concomitant]
     Active Substance: FULVESTRANT
     Indication: BREAST CANCER
     Dosage: 1 OT, QMO
     Route: 065
  5. FASLODEX [Suspect]
     Active Substance: FULVESTRANT
     Indication: PRODUCT USED FOR UNKNOWN INDICATION
     Route: 065
  6. AFINITOR [Suspect]
     Active Substance: EVEROLIMUS
     Indication: BREAST CANCER
     Dosage: 10 MG, QD
     Route: 048

REACTIONS (26)
  - Fatigue [Recovered/Resolved]
  - Nausea [Recovered/Resolved]
  - Decreased appetite [Unknown]
  - Hepatic neoplasm [Not Recovered/Not Resolved]
  - Pain [Unknown]
  - Gastritis [Unknown]
  - Chills [Unknown]
  - Influenza [Unknown]
  - Product use in unapproved indication [Not Recovered/Not Resolved]
  - Mouth ulceration [Recovered/Resolved]
  - Abdominal discomfort [Recovered/Resolved]
  - Ageusia [Unknown]
  - White blood cell count decreased [Recovered/Resolved]
  - Bone pain [Recovered/Resolved]
  - Hepatic enzyme abnormal [Recovered/Resolved]
  - Rash generalised [Recovered/Resolved]
  - Dizziness [Unknown]
  - Eye swelling [Unknown]
  - Pain in extremity [Unknown]
  - Discomfort [Unknown]
  - Platelet count decreased [Recovered/Resolved]
  - Red blood cell count decreased [Recovered/Resolved]
  - Inappropriate schedule of drug administration [Unknown]
  - Peripheral swelling [Recovered/Resolved]
  - Insomnia [Recovered/Resolved]
  - Acne [Unknown]

NARRATIVE: CASE EVENT DATE: 20170513
